FAERS Safety Report 7880473-2 (Version None)
Quarter: 2011Q4

REPORT INFORMATION
  Report Type: 
  Country: None (occurrence: None)
  Receive Date: 20111101
  Receipt Date: 20111024
  Transmission Date: 20120403
  Serious: Yes (Other)
  Sender: FDA-Public Use
  Company Number: PHFR2011GB05493

PATIENT
  Sex: Female

DRUGS (5)
  1. MIRTAZAPINE [Concomitant]
     Indication: DEPRESSED MOOD
     Dosage: 45 MG/DAY
     Route: 048
  2. ZOPICLONE [Concomitant]
     Indication: INSOMNIA
     Dosage: 7.5 MG/DAY
     Route: 048
  3. CLOZARIL [Suspect]
     Dosage: 750 MG/DAY
     Route: 048
     Dates: start: 20110921
  4. CLOZARIL [Suspect]
     Indication: SCHIZOPHRENIA
     Dosage: 750 MG/DAY
     Route: 048
     Dates: start: 20060814, end: 20110914
  5. TOPIRAMATE [Concomitant]
     Dosage: 300 MG/DAY
     Route: 048

REACTIONS (1)
  - MEDICATION ERROR [None]
